FAERS Safety Report 6719433-3 (Version None)
Quarter: 2010Q2

REPORT INFORMATION
  Report Type: 
  Country: None (occurrence: None)
  Receive Date: 20100510
  Receipt Date: 20100510
  Transmission Date: 20101027
  Serious: Yes (Hospitalization)
  Sender: FDA-Public Use
  Company Number: None

PATIENT
  Age: 53 Year
  Sex: Male
  Weight: 73.6 kg

DRUGS (1)
  1. ALIMTA [Suspect]
     Indication: NON-SMALL CELL LUNG CANCER METASTATIC
     Dosage: 925MG X1 IV
     Route: 042
     Dates: start: 20100430

REACTIONS (3)
  - HYDROPNEUMOTHORAX [None]
  - INTERSTITIAL LUNG DISEASE [None]
  - POST PROCEDURAL COMPLICATION [None]
